FAERS Safety Report 8148651-5 (Version None)
Quarter: 2012Q1

REPORT INFORMATION
  Report Type: 
  Country: None (occurrence: None)
  Receive Date: 20120218
  Receipt Date: 20110624
  Transmission Date: 20120608
  Serious: No
  Sender: FDA-Public Use
  Company Number: US-ALLERGAN-1108629US

PATIENT
  Age: 43 Year
  Sex: Female

DRUGS (2)
  1. BOTOX COSMETIC [Suspect]
     Indication: SKIN WRINKLING
  2. BOTOX COSMETIC [Suspect]
     Dosage: 26 UNITS, SINGLE

REACTIONS (1)
  - DRUG INEFFECTIVE [None]
